FAERS Safety Report 21718427 (Version 2)
Quarter: 2023Q1

REPORT INFORMATION
  Report Type: Spontaneous
  Country: US (occurrence: US)
  Receive Date: 20221212
  Receipt Date: 20230315
  Transmission Date: 20230417
  Serious: No
  Sender: FDA-Public Use
  Company Number: US-BRISTOL-MYERS SQUIBB COMPANY-2022-152152

PATIENT
  Age: 71 Year
  Sex: Female

DRUGS (1)
  1. OPDIVO [Suspect]
     Active Substance: NIVOLUMAB
     Indication: Product used for unknown indication
     Dosage: DOSE : 360MG;     FREQ : EVERY 3 WEEKS, STRENGTH AND PRESENTATION OF THE AE : 1 240MG, AND 1,120MG ,
     Route: 042

REACTIONS (1)
  - Adverse event [Unknown]
